FAERS Safety Report 18910525 (Version 1)
Quarter: 2021Q1

REPORT INFORMATION
  Report Type: Spontaneous
  Country: US (occurrence: US)
  Receive Date: 20210218
  Receipt Date: 20210218
  Transmission Date: 20210420
  Serious: No
  Sender: FDA-Public Use
  Company Number: US-UNITED THERAPEUTICS-UNT-2020-019903

PATIENT
  Age: 62 Year
  Sex: Female
  Weight: 66.67 kg

DRUGS (29)
  1. TYVASO [Suspect]
     Active Substance: TREPROSTINIL
     Dosage: UNK
  2. AMITRIPTYLINE [Concomitant]
     Active Substance: AMITRIPTYLINE
     Indication: HEADACHE
     Dosage: 40 MG, QHS
     Route: 048
     Dates: start: 202002
  3. TYVASO [Suspect]
     Active Substance: TREPROSTINIL
     Indication: PULMONARY ARTERIAL HYPERTENSION
     Dosage: UNK
     Dates: start: 20201202
  4. BOSENTAN. [Concomitant]
     Active Substance: BOSENTAN
     Indication: PULMONARY ARTERIAL HYPERTENSION
     Dosage: 62.5 MG, BID
     Route: 048
     Dates: start: 2019
  5. CLARITIN [Concomitant]
     Active Substance: LORATADINE
     Indication: NASAL CONGESTION
     Dosage: UNK
     Route: 065
  6. CENTRUM SILVER [ASCORBIC ACID;BIOTIN;BORON;CALCIUM;CALCIUM PANTOTHENAT [Concomitant]
     Indication: PRODUCT USED FOR UNKNOWN INDICATION
     Dosage: UNK
     Route: 065
  7. TYVASO [Suspect]
     Active Substance: TREPROSTINIL
     Dosage: 18?54 ?G, QID
  8. TYVASO [Suspect]
     Active Substance: TREPROSTINIL
     Dosage: 54 ?G, QID
     Dates: start: 20201207
  9. TYVASO [Suspect]
     Active Substance: TREPROSTINIL
     Dosage: UNK
  10. FUROSEMIDE. [Concomitant]
     Active Substance: FUROSEMIDE
     Indication: PULMONARY ARTERIAL HYPERTENSION
     Dosage: 50 MG, QD
     Route: 065
  11. CLINDAMYCIN. [Concomitant]
     Active Substance: CLINDAMYCIN
     Indication: FOLLICULITIS
     Dosage: AS NEEDED (PRN)
     Route: 065
  12. SIMETHICONE (DIMETHICONE) [Concomitant]
     Active Substance: DIMETHICONE
     Indication: FLATULENCE
     Dosage: 80 MG, PRN
     Route: 065
  13. VITAMIN D [COLECALCIFEROL] [Concomitant]
     Active Substance: CHOLECALCIFEROL
     Indication: PRODUCT USED FOR UNKNOWN INDICATION
     Dosage: 5000 MG, QD
     Route: 065
  14. VITAMIN C [Concomitant]
     Active Substance: ASCORBIC ACID
     Indication: PRODUCT USED FOR UNKNOWN INDICATION
     Dosage: 1000 MG, QD
     Route: 065
  15. GLYCERIN SUPPOSITORIES [Concomitant]
     Indication: HAEMORRHOIDS
     Dosage: AS NEEDED (PRN)
     Route: 065
  16. MAGNESIUM [Concomitant]
     Active Substance: MAGNESIUM
     Indication: PRODUCT USED FOR UNKNOWN INDICATION
     Dosage: UNK
     Route: 065
  17. CRANBERRY [ASCORBIC ACID;VACCINIUM MACROCARPON] [Concomitant]
     Active Substance: ASCORBIC ACID\CRANBERRY
     Indication: PRODUCT USED FOR UNKNOWN INDICATION
     Dosage: UNK
     Route: 065
  18. RESTASIS [Concomitant]
     Active Substance: CYCLOSPORINE
     Indication: SJOGREN^S SYNDROME
     Dosage: 1 DROP IN EACH EYE, TWICE DAILY (BID)
     Route: 065
  19. FLONASE [Concomitant]
     Active Substance: FLUTICASONE PROPIONATE
     Indication: NASAL CONGESTION
     Dosage: ONE SPRAY IN EACH NOSTRIL, ONCE DAILY (QD)
     Route: 045
  20. ESTRADIOL. [Concomitant]
     Active Substance: ESTRADIOL
     Indication: SJOGREN^S SYNDROME
     Dosage: 1 GRAM, 2 TIMES/WK
     Route: 065
  21. METAMUCIL [Concomitant]
     Active Substance: PLANTAGO SEED
     Indication: DYSPEPSIA
     Dosage: UNK
     Route: 065
  22. CALCIUM [Concomitant]
     Active Substance: CALCIUM
     Indication: PRODUCT USED FOR UNKNOWN INDICATION
     Dosage: 1200 MG, QD
     Route: 065
  23. MIRALAX [Concomitant]
     Active Substance: POLYETHYLENE GLYCOL 3350
     Indication: PRODUCT USED FOR UNKNOWN INDICATION
     Dosage: AS NEEDED (PRN)
     Route: 065
  24. AMLODIPINE [Concomitant]
     Active Substance: AMLODIPINE BESYLATE
     Indication: RAYNAUD^S PHENOMENON
     Dosage: 5 MG, QD
     Route: 065
  25. EMUAID [Concomitant]
     Active Substance: HOMEOPATHICS
     Indication: PRODUCT USED FOR UNKNOWN INDICATION
     Dosage: AS NEEDED (PRN)
     Route: 065
  26. HYDROXYCHLOROQUINE [Concomitant]
     Active Substance: HYDROXYCHLOROQUINE
     Indication: CREST SYNDROME
     Dosage: 200 MG, QD
     Route: 065
  27. HYDROCORTISONE. [Concomitant]
     Active Substance: HYDROCORTISONE
     Indication: LICHEN SCLEROSUS
     Dosage: UNK
     Route: 065
  28. TACROLIMUS. [Concomitant]
     Active Substance: TACROLIMUS
     Indication: PRODUCT USED FOR UNKNOWN INDICATION
     Dosage: AS NEEDED (PRN)
     Route: 065
  29. OMEPRAZOLE. [Concomitant]
     Active Substance: OMEPRAZOLE
     Indication: DYSPEPSIA
     Dosage: 20 MG, QD
     Route: 065

REACTIONS (9)
  - Fatigue [Unknown]
  - Dry throat [Unknown]
  - Balance disorder [Unknown]
  - Liver disorder [Unknown]
  - Abdominal distension [Unknown]
  - Dry mouth [Unknown]
  - Gastrointestinal motility disorder [Unknown]
  - Anal incontinence [Unknown]
  - Cough [Unknown]

NARRATIVE: CASE EVENT DATE: 202012
